FAERS Safety Report 21410866 (Version 5)
Quarter: 2024Q1

REPORT INFORMATION
  Report Type: Spontaneous
  Country: JP (occurrence: JP)
  Receive Date: 20221005
  Receipt Date: 20240320
  Transmission Date: 20240410
  Serious: Yes (Other)
  Sender: FDA-Public Use
  Company Number: JP-TAKEDA-2022TJP073456

PATIENT
  Age: 46 Year
  Sex: Female
  Weight: 51 kg

DRUGS (4)
  1. LEUPLIN [Suspect]
     Active Substance: LEUPROLIDE ACETATE
     Indication: Hormone receptor positive HER2 negative breast cancer
     Dosage: 22.5 MILLIGRAM, Q6MONTHS
     Route: 058
     Dates: start: 20211228
  2. LOXOPROFEN [Concomitant]
     Active Substance: LOXOPROFEN
     Indication: Periarthritis
     Dosage: 60 MILLIGRAM
     Route: 048
     Dates: start: 20211227, end: 20220620
  3. NOLVADEX [Concomitant]
     Active Substance: TAMOXIFEN CITRATE
     Indication: Hormone receptor positive HER2 negative breast cancer
     Dosage: 20 MILLIGRAM, BID
     Route: 048
     Dates: start: 20211129
  4. REBAMIPIDE [Concomitant]
     Active Substance: REBAMIPIDE
     Indication: Gastritis
     Dosage: 14100 MG
     Route: 048
     Dates: start: 20220131, end: 20220620

REACTIONS (2)
  - Graves^ disease [Recovering/Resolving]
  - Acute sinusitis [Recovering/Resolving]

NARRATIVE: CASE EVENT DATE: 20220707
